FAERS Safety Report 7166215-7 (Version None)
Quarter: 2010Q4

REPORT INFORMATION
  Report Type: 
  Country: None (occurrence: None)
  Receive Date: 20101201
  Receipt Date: 20101117
  Transmission Date: 20110411
  Serious: Yes (Hospitalization)
  Sender: FDA-Public Use
  Company Number: 2010P1002716

PATIENT
  Age: 87 Year
  Sex: Female
  Weight: 56.6996 kg

DRUGS (6)
  1. FENTANYL-25 [Suspect]
     Indication: BACK PAIN
     Dosage: 25 MCG/HR;Q3D;TDER
     Route: 062
     Dates: start: 20080101
  2. FOSAMAX [Concomitant]
  3. DIOVAN [Concomitant]
  4. OXYCODONE HCL [Concomitant]
  5. ^WATER PILL^ [Concomitant]
  6. PREV MEDS [Concomitant]

REACTIONS (4)
  - DIZZINESS [None]
  - FALL [None]
  - FOOT FRACTURE [None]
  - LACERATION [None]
